FAERS Safety Report 21000553 (Version 1)
Quarter: 2022Q2

REPORT INFORMATION
  Report Type: Spontaneous
  Country: ES (occurrence: ES)
  Receive Date: 20220623
  Receipt Date: 20220623
  Transmission Date: 20220721
  Serious: Yes (Other)
  Sender: FDA-Public Use
  Company Number: ES-BIAL-BIAL-10521

PATIENT

DRUGS (6)
  1. ONGENTYS [Suspect]
     Active Substance: OPICAPONE
     Indication: Parkinson^s disease
     Dosage: 50 MILLIGRAM, 1X / DAY
     Route: 048
     Dates: start: 202009
  2. CARBIDOPA\LEVODOPA [Concomitant]
     Active Substance: CARBIDOPA\LEVODOPA
     Indication: Parkinson^s disease
     Dosage: 100/25 MG, FOUR TIMES DAILY, 1.5-1.5-1.5-1,
     Dates: start: 202003
  3. CARBIDOPA\LEVODOPA [Concomitant]
     Active Substance: CARBIDOPA\LEVODOPA
     Dosage: 1,5 DF FOUR TIMES DAILY (1.5-1.5-1.5-1.5)
  4. AZILECT [Concomitant]
     Active Substance: RASAGILINE MESYLATE
     Indication: Parkinson^s disease
     Dosage: 1 MILLIGRAM, 1X / DAY
     Dates: start: 201907
  5. RIVOTRIL [Concomitant]
     Active Substance: CLONAZEPAM
     Indication: Parkinson^s disease
     Dosage: 0.5 MILLIGRAM, 1X / DAY
     Dates: start: 202003
  6. XADAGO [Concomitant]
     Active Substance: SAFINAMIDE MESYLATE
     Dosage: 50 MILLIGRAM, 1X / DAY
     Dates: start: 202104

REACTIONS (22)
  - Dystonia [Unknown]
  - Syncope [Unknown]
  - Tremor [Unknown]
  - Dizziness postural [Unknown]
  - Fall [Unknown]
  - Hypotension [Unknown]
  - Pollakiuria [Unknown]
  - Nocturia [Unknown]
  - Musculoskeletal stiffness [Unknown]
  - Gait disturbance [Unknown]
  - Orthostatic hypotension [Unknown]
  - Hypokinesia [Unknown]
  - COVID-19 [Unknown]
  - Motor dysfunction [Unknown]
  - Constipation [Unknown]
  - Fatigue [Unknown]
  - Back pain [Unknown]
  - Movement disorder [Unknown]
  - Reduced facial expression [Unknown]
  - Dysphonia [Unknown]
  - Freezing phenomenon [Unknown]
  - Dysarthria [Unknown]

NARRATIVE: CASE EVENT DATE: 20220101
